FAERS Safety Report 11435155 (Version 2)
Quarter: 2015Q3

REPORT INFORMATION
  Report Type: Spontaneous
  Country: IT (occurrence: IT)
  Receive Date: 20150831
  Receipt Date: 20150902
  Transmission Date: 20151125
  Serious: Yes (Death)
  Sender: FDA-Public Use
  Company Number: IT-009507513-1508ITA013000

PATIENT
  Age: 74 Year
  Sex: Female
  Weight: 70 kg

DRUGS (5)
  1. SOTALEX [Concomitant]
     Active Substance: SOTALOL
     Indication: TACHYARRHYTHMIA
     Dosage: UNK
     Route: 048
  2. TRIATEC (RAMIPRIL) [Concomitant]
     Active Substance: RAMIPRIL
     Indication: HYPERTENSION
     Dosage: 5 MG, QD
     Route: 048
  3. NORFLOXACIN [Suspect]
     Active Substance: NORFLOXACIN
     Dosage: 400 MG, QD
     Route: 048
     Dates: start: 20150403, end: 20150406
  4. TORVAST [Concomitant]
     Active Substance: ATORVASTATIN
     Indication: DYSLIPIDAEMIA
     Dosage: 20 MG, QD
     Route: 048
  5. COUMADIN [Interacting]
     Active Substance: WARFARIN SODIUM
     Dosage: 1 DOSE (UNIT) AS NEEDED
     Route: 048
     Dates: start: 20150101, end: 20150406

REACTIONS (2)
  - Drug interaction [Fatal]
  - Cerebral haemorrhage [Fatal]

NARRATIVE: CASE EVENT DATE: 20150406
